FAERS Safety Report 8329252-2 (Version None)
Quarter: 2012Q2

REPORT INFORMATION
  Report Type: 
  Country: None (occurrence: None)
  Receive Date: 20120502
  Receipt Date: 20110727
  Transmission Date: 20120825
  Serious: No
  Sender: FDA-Public Use
  Company Number: US-ASTRAZENECA-2011SE45058

PATIENT
  Sex: Female

DRUGS (3)
  1. FASLODEX [Suspect]
     Route: 030
     Dates: start: 20110101
  2. RELPAX [Concomitant]
     Indication: MIGRAINE
  3. ALLEVE [Concomitant]

REACTIONS (4)
  - NIGHT SWEATS [None]
  - BACK PAIN [None]
  - HOT FLUSH [None]
  - MIGRAINE [None]
